FAERS Safety Report 18145813 (Version 4)
Quarter: 2020Q4

REPORT INFORMATION
  Report Type: Spontaneous
  Country: JP (occurrence: JP)
  Receive Date: 20200813
  Receipt Date: 20201223
  Transmission Date: 20210113
  Serious: Yes (Other)
  Sender: FDA-Public Use
  Company Number: JP-CELGENEUS-JPN-20200801920

PATIENT
  Age: 81 Year
  Sex: Female

DRUGS (5)
  1. VELCADE [Suspect]
     Active Substance: BORTEZOMIB
     Indication: SECONDARY AMYLOIDOSIS
     Dosage: UNKNOWN
     Route: 058
     Dates: start: 201903, end: 201904
  2. REVLIMID [Suspect]
     Active Substance: LENALIDOMIDE
     Indication: SECONDARY AMYLOIDOSIS
     Dosage: UNKNOWN
     Route: 048
     Dates: start: 201903, end: 201912
  3. DEXAMETHASONE. [Suspect]
     Active Substance: DEXAMETHASONE
     Indication: SECONDARY AMYLOIDOSIS
     Dosage: UNKNOWN
     Route: 048
     Dates: start: 201903
  4. IXAZOMIB [Concomitant]
     Active Substance: IXAZOMIB
     Indication: SECONDARY AMYLOIDOSIS
     Dosage: UNKNOWN
     Route: 065
     Dates: start: 201904, end: 201909
  5. EMPLICITI [Concomitant]
     Active Substance: ELOTUZUMAB
     Indication: SECONDARY AMYLOIDOSIS
     Dosage: UNKNOWN
     Route: 041
     Dates: start: 201909

REACTIONS (4)
  - Arrhythmia [Unknown]
  - Brain natriuretic peptide increased [Not Recovered/Not Resolved]
  - Cardiac failure [Recovering/Resolving]
  - Cardiac arrest [Recovering/Resolving]

NARRATIVE: CASE EVENT DATE: 2019
